FAERS Safety Report 8242647-0 (Version None)
Quarter: 2012Q1

REPORT INFORMATION
  Report Type: 
  Country: None (occurrence: None)
  Receive Date: 20120329
  Receipt Date: 20120323
  Transmission Date: 20120608
  Serious: Yes (Hospitalization)
  Sender: FDA-Public Use
  Company Number: PHHO2012US001758

PATIENT
  Sex: Male
  Weight: 62 kg

DRUGS (20)
  1. FOLFOX-6 [Concomitant]
     Indication: COLORECTAL CANCER
     Dosage: UNK
     Dates: start: 20110429, end: 20111220
  2. OXYCODONE HCL [Concomitant]
  3. JANUVIA [Concomitant]
  4. ZICONOTIDE [Concomitant]
  5. CELEXA [Concomitant]
  6. IBUPROFEN [Concomitant]
  7. CLONIDINE [Concomitant]
  8. AFINITOR [Suspect]
     Indication: COLORECTAL CANCER
     Dosage: UNK
     Dates: start: 20110429, end: 20120103
  9. AVASTIN [Concomitant]
     Indication: COLORECTAL CANCER
     Dosage: UNK
     Dates: start: 20110429, end: 20111220
  10. HYDROMORPHONE HCL [Concomitant]
  11. MINOCYCLINE HCL [Concomitant]
  12. ZOFRAN [Concomitant]
  13. ALPRAZOLAM [Concomitant]
  14. FENTANYL [Concomitant]
  15. IMODIUM [Concomitant]
  16. ATIVAN [Concomitant]
  17. DROPERIDOL [Concomitant]
  18. KEFLEX [Concomitant]
  19. MULTI-VITAMINS [Concomitant]
  20. CLONAZEPAM [Concomitant]

REACTIONS (3)
  - BILE DUCT STENOSIS [None]
  - GALLBLADDER DISORDER [None]
  - GALLBLADDER OBSTRUCTION [None]
